FAERS Safety Report 9604650 (Version 1)
Quarter: 2013Q4

REPORT INFORMATION
  Report Type: Spontaneous
  Country: US (occurrence: US)
  Receive Date: 20131008
  Receipt Date: 20131008
  Transmission Date: 20140711
  Serious: No
  Sender: FDA-Public Use
  Company Number: US-PFIZER INC-2013284302

PATIENT
  Age: 23 Year
  Sex: Female
  Weight: 57.6 kg

DRUGS (1)
  1. ADVIL [Suspect]
     Indication: HEADACHE
     Dosage: TWO CAPSULE, THREE TIMES A DAY
     Route: 048
     Dates: start: 20130930, end: 20130930

REACTIONS (1)
  - Swelling face [Not Recovered/Not Resolved]
